FAERS Safety Report 19264934 (Version 2)
Quarter: 2021Q2

REPORT INFORMATION
  Report Type: Spontaneous
  Country: DE (occurrence: DE)
  Receive Date: 20210517
  Receipt Date: 20210524
  Transmission Date: 20210717
  Serious: Yes (Other)
  Sender: FDA-Public Use
  Company Number: DE-ALIMERA SCIENCES INC.-DE-A16013-21-000100

PATIENT

DRUGS (1)
  1. ILUVIEN [Suspect]
     Active Substance: FLUOCINOLONE ACETONIDE
     Indication: UVEITIS
     Dosage: 0.25 MICROGRAM, QD?LEFT EYE
     Route: 031
     Dates: start: 20210119

REACTIONS (2)
  - Corneal dystrophy [Not Recovered/Not Resolved]
  - Corneal decompensation [Unknown]

NARRATIVE: CASE EVENT DATE: 20210120
